FAERS Safety Report 15456894 (Version 1)
Quarter: 2018Q4

REPORT INFORMATION
  Report Type: Spontaneous
  Country: JP (occurrence: JP)
  Receive Date: 20181002
  Receipt Date: 20181002
  Transmission Date: 20190204
  Serious: Yes (Hospitalization)
  Sender: FDA-Public Use
  Company Number: JP-PFIZER INC-2018390808

PATIENT
  Age: 78 Year
  Sex: Female

DRUGS (6)
  1. CEFTRIAXONE SODIUM PFIZER [Suspect]
     Active Substance: CEFTRIAXONE SODIUM
     Indication: INFECTION
     Dosage: UNK
     Route: 041
     Dates: start: 20180827
  2. UREPEARL [Concomitant]
     Active Substance: UREA
     Indication: XERODERMA
     Dosage: 10 %, DAILY
     Route: 062
  3. HERBAL EXTRACT NOS [Concomitant]
     Active Substance: HERBALS
     Indication: ANXIETY
     Dosage: UNK
     Route: 048
  4. EXELON [RIVASTIGMINE] [Concomitant]
     Indication: DEMENTIA ALZHEIMER^S TYPE
     Dosage: 9 MG, DAILY
     Route: 062
  5. LOCOID [Concomitant]
     Active Substance: HYDROCORTISONE BUTYRATE
     Indication: ECZEMA
     Dosage: 0.1 %, DAILY
     Route: 062
  6. AMLODIPINE NP [Concomitant]
     Indication: HYPERTENSION
     Dosage: 5 MG, DAILY
     Route: 048

REACTIONS (1)
  - Altered state of consciousness [Not Recovered/Not Resolved]

NARRATIVE: CASE EVENT DATE: 20180827
